FAERS Safety Report 25765719 (Version 1)
Quarter: 2025Q3

REPORT INFORMATION
  Report Type: Spontaneous
  Country: CN (occurrence: CN)
  Receive Date: 20250905
  Receipt Date: 20250905
  Transmission Date: 20251021
  Serious: Yes (Other)
  Sender: BAXTER
  Company Number: None

PATIENT
  Age: 61 Year
  Sex: Female
  Weight: 57 kg

DRUGS (5)
  1. CYCLOPHOSPHAMIDE [Suspect]
     Active Substance: CYCLOPHOSPHAMIDE
     Indication: Hormone receptor positive breast cancer
     Dosage: 730 MG, QD (WITH NS 40ML), EC REGIMEN C1 CHEMOTHERAPY
     Route: 042
     Dates: start: 20250521, end: 20250521
  2. SODIUM CHLORIDE [Suspect]
     Active Substance: SODIUM CHLORIDE
     Dosage: 40 ML QD WITH CYCLOPHOSPHAMIDE (ENDOXAN) 730 MG)
     Route: 042
     Dates: start: 20250521, end: 20250521
  3. SODIUM CHLORIDE [Suspect]
     Active Substance: SODIUM CHLORIDE
     Dosage: 100 ML QD WITH EPIRUBICIN (PHARMORUBICIN 100 MG)
     Route: 041
     Dates: start: 20250521, end: 20250521
  4. EPIRUBICIN [Suspect]
     Active Substance: EPIRUBICIN
     Indication: Hormone receptor positive breast cancer
     Dosage: 100 MG, QD (WITH NS 100ML), EC REGIMEN C1 CHEMOTHERAPY
     Route: 041
     Dates: start: 20250521, end: 20250521
  5. PEGYLATED GRANULOCYTE COLONY-STIMULATING FACTOR [Concomitant]
     Active Substance: PEGYLATED GRANULOCYTE COLONY-STIMULATING FACTOR
     Route: 058
     Dates: start: 20250523

REACTIONS (4)
  - White blood cell count decreased [Recovering/Resolving]
  - Neutrophil count decreased [Recovering/Resolving]
  - Platelet count decreased [Recovering/Resolving]
  - Cough [Unknown]

NARRATIVE: CASE EVENT DATE: 20250528
